FAERS Safety Report 22167101 (Version 1)
Quarter: 2023Q2

REPORT INFORMATION
  Report Type: Spontaneous
  Country: US (occurrence: None)
  Receive Date: 20230402
  Receipt Date: 20230402
  Transmission Date: 20230721
  Serious: No
  Sender: FDA-Public Use
  Company Number: None

PATIENT
  Age: 73 Year
  Sex: Female
  Weight: 72 kg

DRUGS (7)
  1. PHENAZOPYRIDINE HYDROCHLORIDE [Suspect]
     Active Substance: PHENAZOPYRIDINE HYDROCHLORIDE
     Dosage: 2 TABLETS 3 TIMES A DAY ORAL
     Route: 048
     Dates: start: 20230329
  2. Multi-vitamins [Concomitant]
  3. VITAMIN B [Concomitant]
     Active Substance: VITAMIN B
  4. POTASSIUM [Concomitant]
     Active Substance: POTASSIUM
  5. D [Concomitant]
  6. CALCIUM [Concomitant]
     Active Substance: CALCIUM
  7. MAGNESIUM [Concomitant]
     Active Substance: MAGNESIUM

REACTIONS (2)
  - Pruritus [None]
  - Urticaria [None]

NARRATIVE: CASE EVENT DATE: 20230330
